FAERS Safety Report 11591935 (Version 2)
Quarter: 2015Q4

REPORT INFORMATION
  Report Type: Spontaneous
  Country: US (occurrence: US)
  Receive Date: 20151005
  Receipt Date: 20151109
  Transmission Date: 20160304
  Serious: Yes (Death)
  Sender: FDA-Public Use
  Company Number: US-PFIZER INC-2015318022

PATIENT
  Age: 30 Year
  Sex: Male

DRUGS (3)
  1. METHADONE [Concomitant]
     Active Substance: METHADONE HYDROCHLORIDE
     Indication: PAIN
     Dosage: 30 MG, 4X/DAY (EVERY 6 HOURS)
  2. OXYCODONE [Concomitant]
     Active Substance: OXYCODONE
     Indication: PAIN
     Dosage: 30 MG, 4X/DAY (EVERY 6 HOURS)
  3. IBRANCE [Suspect]
     Active Substance: PALBOCICLIB
     Indication: NEOPLASM MALIGNANT
     Dosage: UNK
     Dates: start: 20150616

REACTIONS (6)
  - Death [Fatal]
  - Constipation [Unknown]
  - Neoplasm malignant [Unknown]
  - Product use issue [Unknown]
  - Disease progression [Unknown]
  - Pain [Unknown]
